FAERS Safety Report 6673361-0 (Version None)
Quarter: 2010Q1

REPORT INFORMATION
  Report Type: 
  Country: None (occurrence: None)
  Receive Date: 20100329
  Receipt Date: 20091029
  Transmission Date: 20100710
  Serious: Yes (Other)
  Sender: FDA-Public Use
  Company Number: 2009265562

PATIENT
  Age: 10 Year
  Sex: Female

DRUGS (5)
  1. GEODON [Suspect]
     Dosage: 60 MG, 2X/DAY
     Dates: start: 20090201
  2. DEPAKOTE [Concomitant]
  3. TRILEPTAL [Concomitant]
  4. KLONOPIN [Concomitant]
  5. LISDEXAMFETAMINE DIMESYLATE (LISDEXAMFETAMINE DIMESYLATE) [Concomitant]

REACTIONS (1)
  - CONVULSION [None]
